FAERS Safety Report 24337343 (Version 1)
Quarter: 2024Q3

REPORT INFORMATION
  Report Type: Spontaneous
  Country: US (occurrence: US)
  Receive Date: 20240919
  Receipt Date: 20240919
  Transmission Date: 20241017
  Serious: Yes (Other)
  Sender: AMGEN
  Company Number: US-AMGEN-USASP2024183659

PATIENT
  Sex: Female

DRUGS (3)
  1. MVASI [Suspect]
     Active Substance: BEVACIZUMAB-AWWB
     Indication: Hepatocellular carcinoma
     Dosage: DOSE ORDERED: 850MG (2X400 MG AND 1X100 MG)
     Route: 065
  2. MVASI [Suspect]
     Active Substance: BEVACIZUMAB-AWWB
     Dosage: DOSE ORDERED: 850MG (2X400 MG AND 1X100 MG)
     Route: 065
  3. MVASI [Suspect]
     Active Substance: BEVACIZUMAB-AWWB
     Dosage: DOSE ORDERED: 850MG (2X400 MG AND 1X100 MG)
     Route: 065

REACTIONS (2)
  - Hepatocellular carcinoma [Unknown]
  - Off label use [Unknown]
